FAERS Safety Report 19937956 (Version 1)
Quarter: 2021Q4

REPORT INFORMATION
  Report Type: Spontaneous
  Country: IN (occurrence: IN)
  Receive Date: 20211011
  Receipt Date: 20211011
  Transmission Date: 20220303
  Serious: Yes (Other)
  Sender: FDA-Public Use
  Company Number: IN-VISTAPHARM, INC.-VER202110-001993

PATIENT
  Age: 40 Year
  Sex: Male

DRUGS (1)
  1. PHENYTOIN [Suspect]
     Active Substance: PHENYTOIN
     Indication: Seizure
     Dosage: 150 MG/ DAY (ON AND OFF UPTAKE)
     Route: 048

REACTIONS (5)
  - Neurotoxicity [Unknown]
  - Memory impairment [Unknown]
  - Visual impairment [Unknown]
  - Gait disturbance [Unknown]
  - Ataxia [Unknown]
